FAERS Safety Report 10346779 (Version 2)
Quarter: 2014Q3

REPORT INFORMATION
  Report Type: Report from Study
  Country: RU (occurrence: RU)
  Receive Date: 20140729
  Receipt Date: 20140819
  Transmission Date: 20150326
  Serious: Yes (Life-Threatening, Other)
  Sender: FDA-Public Use
  Company Number: RU-ROCHE-1438406

PATIENT

DRUGS (3)
  1. CISPLATIN. [Suspect]
     Active Substance: CISPLATIN
     Indication: METASTATIC GASTRIC CANCER
     Dosage: ON DAY 1
     Route: 042
  2. CAPECITABINE [Suspect]
     Active Substance: CAPECITABINE
     Indication: METASTATIC GASTRIC CANCER
     Dosage: DAY 1-14
     Route: 065
  3. OXALIPLATIN. [Suspect]
     Active Substance: OXALIPLATIN
     Indication: METASTATIC GASTRIC CANCER
     Dosage: ON DAY 1
     Route: 042

REACTIONS (7)
  - Deep vein thrombosis [Unknown]
  - Diarrhoea [Unknown]
  - Neutropenia [Unknown]
  - Stomatitis [Unknown]
  - Anaemia [Unknown]
  - Neurotoxicity [Unknown]
  - Infection [Unknown]
